FAERS Safety Report 5579947-9 (Version None)
Quarter: 2008Q1

REPORT INFORMATION
  Report Type: 
  Country: None (occurrence: None)
  Receive Date: 20080103
  Receipt Date: 20071228
  Transmission Date: 20080703
  Serious: Yes (Hospitalization)
  Sender: FDA-Public Use
  Company Number: FR-JNJFOC-20071206174

PATIENT
  Sex: Female

DRUGS (4)
  1. REMINYL [Suspect]
     Indication: DEMENTIA ALZHEIMER'S TYPE
     Route: 048
  2. CARBAMAZEPINE [Suspect]
     Indication: EPILEPSY
     Route: 048
  3. GARDENAL [Suspect]
     Indication: EPILEPSY
     Route: 048
  4. STILNOX [Suspect]
     Indication: INSOMNIA
     Route: 048

REACTIONS (2)
  - BALANCE DISORDER [None]
  - FALL [None]
